FAERS Safety Report 9456720 (Version 1)
Quarter: 2013Q3

REPORT INFORMATION
  Report Type: Spontaneous
  Country: US (occurrence: US)
  Receive Date: 20130813
  Receipt Date: 20130813
  Transmission Date: 20140515
  Serious: Yes (Hospitalization)
  Sender: FDA-Public Use
  Company Number: US-B.I. PHARMACEUTICALS,INC./RIDGEFIELD-2013-BI-16753BP

PATIENT
  Sex: Female
  Weight: 95.25 kg

DRUGS (15)
  1. PRADAXA [Suspect]
     Indication: ATRIAL FIBRILLATION
     Dosage: 300 MG
     Route: 048
     Dates: start: 20120716, end: 20121030
  2. VOLTAREN XR [Suspect]
     Route: 048
     Dates: end: 20121030
  3. CLONIDINE [Concomitant]
     Dosage: 0.9 MG
     Route: 048
  4. LISINOPRIL [Concomitant]
     Dosage: 40 MG
     Route: 048
  5. LORTAB [Concomitant]
     Route: 048
  6. HYDRALAZINE [Concomitant]
     Dosage: 100 MG
     Route: 048
  7. PACERONE [Concomitant]
     Dosage: 200 MG
     Route: 048
  8. GABAPENTIN [Concomitant]
     Route: 048
  9. AMLODIPINE [Concomitant]
     Dosage: 10 MG
     Route: 048
  10. CLINDAMYCIN [Concomitant]
     Dosage: 600 MG
     Route: 048
  11. METOPROLOL TARTRATE [Concomitant]
     Dosage: 50 MG
     Route: 048
  12. KLOR-CON M20 [Concomitant]
     Route: 048
  13. ATORVASTATIN [Concomitant]
     Dosage: 80 MG
     Route: 048
  14. ULTRACET [Concomitant]
     Route: 048
  15. LASIX [Concomitant]
     Dosage: 40 MG
     Route: 048

REACTIONS (1)
  - Lower gastrointestinal haemorrhage [Unknown]
